FAERS Safety Report 6097599-9 (Version None)
Quarter: 2009Q1

REPORT INFORMATION
  Report Type: 
  Country: None (occurrence: None)
  Receive Date: 20090227
  Receipt Date: 20090107
  Transmission Date: 20090719
  Serious: No
  Sender: FDA-Public Use
  Company Number: A0761357A

PATIENT
  Age: 55 Year
  Sex: Female
  Weight: 59.1 kg

DRUGS (7)
  1. SUMATRIPTAN SUCCINATE [Suspect]
     Indication: MIGRAINE
     Dosage: 6MG AS REQUIRED
     Route: 058
     Dates: start: 20081213
  2. GSK AUTOINJECTOR [Suspect]
     Indication: MIGRAINE
     Dates: start: 20081213
  3. IMITREX [Suspect]
     Indication: MIGRAINE
     Route: 058
  4. WELLBUTRIN [Concomitant]
  5. NEURONTIN [Concomitant]
     Dosage: 1200MG PER DAY
  6. XANAX [Concomitant]
  7. NASACORT [Concomitant]

REACTIONS (3)
  - DRUG INEFFECTIVE [None]
  - INJECTION SITE IRRITATION [None]
  - PRODUCT QUALITY ISSUE [None]
